FAERS Safety Report 23870845 (Version 1)
Quarter: 2024Q2

REPORT INFORMATION
  Report Type: Spontaneous
  Country: US (occurrence: US)
  Receive Date: 20240518
  Receipt Date: 20240518
  Transmission Date: 20240716
  Serious: No
  Sender: FDA-Public Use
  Company Number: US-TEVA-VS-3195393

PATIENT
  Sex: Male

DRUGS (1)
  1. PIMECROLIMUS [Suspect]
     Active Substance: PIMECROLIMUS
     Indication: Dermatitis
     Dosage: TWO (2) TIMES
     Route: 065

REACTIONS (2)
  - Skin burning sensation [Unknown]
  - Dermatitis [Unknown]
